FAERS Safety Report 23781268 (Version 1)
Quarter: 2024Q2

REPORT INFORMATION
  Report Type: Spontaneous
  Country: DE (occurrence: DE)
  Receive Date: 20240425
  Receipt Date: 20240425
  Transmission Date: 20240715
  Serious: Yes (Other)
  Sender: FDA-Public Use
  Company Number: DE-CELLTRION INC.-2021DE012715

PATIENT

DRUGS (6)
  1. ADALIMUMAB [Suspect]
     Active Substance: ADALIMUMAB\ISOPROPYL ALCOHOL
     Indication: Psoriatic arthropathy
     Dosage: ADDITIONAL INFORMATION ON DRUG (FREE TEXT): UNIT=NOT AVAILABLE
     Route: 065
  2. APREMILAST [Suspect]
     Active Substance: APREMILAST
     Indication: Psoriatic arthropathy
     Dosage: 30 MILLIGRAM, BID
     Route: 048
  3. APREMILAST [Suspect]
     Active Substance: APREMILAST
     Dosage: 30 MILLIGRAM, QD
     Route: 048
  4. ETANERCEPT [Suspect]
     Active Substance: ETANERCEPT
     Indication: Psoriatic arthropathy
     Dosage: DOSE: 1; 25-50 MG, Q2WK; ADDITIONAL INFORMATION ON DRUG (FREE TEXT): UNIT=NOT AVAILABLE
     Route: 058
  5. ETANERCEPT [Suspect]
     Active Substance: ETANERCEPT
     Dosage: 100 MILLIGRAM, QWK; ADDITIONAL INFORMATION ON DRUG (FREE TEXT): UNIT=NOT AVAILABLE
     Route: 058
  6. ETANERCEPT [Suspect]
     Active Substance: ETANERCEPT
     Dosage: 75 MILLIGRAM, QWK; ADDITIONAL INFORMATION ON DRUG (FREE TEXT): UNIT=NOT AVAILABLE
     Route: 058

REACTIONS (4)
  - Psoriatic arthropathy [Recovering/Resolving]
  - Gastrointestinal disorder [Unknown]
  - Drug ineffective [Unknown]
  - Therapeutic response unexpected [Unknown]
